FAERS Safety Report 5985899-X (Version None)
Quarter: 2008Q4

REPORT INFORMATION
  Report Type: 
  Country: None (occurrence: None)
  Receive Date: 20081203
  Receipt Date: 20081203
  Transmission Date: 20090506
  Serious: Yes (Other)
  Sender: FDA-Public Use
  Company Number: None

PATIENT
  Sex: Male

DRUGS (1)
  1. AMBIEN [Suspect]
     Indication: BIPOLAR I DISORDER
     Dosage: 10MG QHS
     Dates: start: 20060203, end: 20070504

REACTIONS (1)
  - INSOMNIA [None]
